FAERS Safety Report 7833827-4 (Version None)
Quarter: 2011Q4

REPORT INFORMATION
  Report Type: 
  Country: None (occurrence: None)
  Receive Date: 20111024
  Receipt Date: 20111013
  Transmission Date: 20120403
  Serious: Yes (Other)
  Sender: FDA-Public Use
  Company Number: US-VIIV HEALTHCARE LIMITED-A0949585A

PATIENT
  Age: 38 Year
  Sex: Male
  Weight: 60 kg

DRUGS (4)
  1. EFAVIRENZ [Concomitant]
     Dosage: 600MG AT NIGHT
     Route: 048
  2. EMTRICITABINE [Concomitant]
     Dosage: 200MG PER DAY
     Route: 048
  3. MARAVIROC [Suspect]
     Indication: HIV INFECTION
     Dosage: 600MG TWICE PER DAY
     Route: 048
     Dates: start: 20100428, end: 20110406
  4. AMLODIPINE [Concomitant]
     Dosage: 10MG PER DAY
     Route: 048

REACTIONS (1)
  - BASAL CELL CARCINOMA [None]
